FAERS Safety Report 5578061-6 (Version None)
Quarter: 2007Q4

REPORT INFORMATION
  Report Type: 
  Country: None (occurrence: None)
  Receive Date: 20071231
  Receipt Date: 20071221
  Transmission Date: 20080405
  Serious: Yes (Hospitalization)
  Sender: FDA-Public Use
  Company Number: ES-ROCHE-533730

PATIENT
  Age: 57 Year
  Sex: Female
  Weight: 61 kg

DRUGS (13)
  1. CAPECITABINE [Suspect]
     Dosage: DOSAGE REGIMEN TEMPORARILY INTERRUPTED. FREQUENCY: EVERY DAY DURING 2 WEEKS. AS PER PROTOCOL CAPECI+
     Route: 048
     Dates: start: 20071102, end: 20071113
  2. CAPECITABINE [Suspect]
     Dosage: DAILY FOR 2 WEEKS
     Route: 048
     Dates: start: 20071220
  3. BEVACIZUMAB [Suspect]
     Route: 042
     Dates: start: 20071102, end: 20071113
  4. BEVACIZUMAB [Suspect]
     Route: 042
     Dates: start: 20071220
  5. OXALIPLATIN [Suspect]
     Route: 042
     Dates: start: 20071102, end: 20071113
  6. OXALIPLATIN [Suspect]
     Route: 042
     Dates: start: 20071220
  7. FORTECORTIN [Concomitant]
     Dates: start: 20070101
  8. INSULINE [Concomitant]
     Dosage: DRUG NAME REPORTED AS FAST INSULINE. TOTAL DAILY DOSE REPORTED AS 10-10-10.
     Dates: start: 20070101
  9. INSULINE [Concomitant]
     Dosage: DRUG NAME REPORTED AS SLOW INSULINE. TOTAL DAILY DOSE REPORTED AS 0-0-30.
     Dates: start: 20070101
  10. OMEPRAZOLE [Concomitant]
     Dates: start: 20070101
  11. ORFIDAL [Concomitant]
     Dosage: TOTAL DAILY DOSE UNKNOWN.
     Dates: start: 20070101
  12. FERROUS [Concomitant]
     Dosage: DRUG NAME REPORTED AS FE ORAL. TOTAL DAILY DOSE UNKNOWN.
     Route: 048
     Dates: start: 20070101
  13. ACETAMINOPHEN [Concomitant]
     Dosage: TOTAL DAILY DOSE UNKNOWN.
     Dates: start: 20071001

REACTIONS (2)
  - DIARRHOEA [None]
  - MUCOSAL INFLAMMATION [None]
